FAERS Safety Report 13381393 (Version 1)
Quarter: 2017Q1

REPORT INFORMATION
  Report Type: Spontaneous
  Country: US (occurrence: US)
  Receive Date: 20170328
  Receipt Date: 20170328
  Transmission Date: 20170429
  Serious: No
  Sender: FDA-Public Use
  Company Number: None

PATIENT
  Age: 33 Year
  Sex: Female

DRUGS (1)
  1. MAGNESIUM [Suspect]
     Active Substance: MAGNESIUM
     Route: 042

REACTIONS (3)
  - Blood pressure decreased [None]
  - Oxygen saturation decreased [None]
  - Incorrect drug administration rate [None]

NARRATIVE: CASE EVENT DATE: 20170227
